FAERS Safety Report 24757428 (Version 10)
Quarter: 2025Q4

REPORT INFORMATION
  Report Type: Report from Study
  Country: BR (occurrence: BR)
  Receive Date: 20241220
  Receipt Date: 20251126
  Transmission Date: 20260117
  Serious: Yes (Other)
  Sender: NOVARTIS
  Company Number: BR-002147023-NVSC2023BR132047

PATIENT
  Age: 47 Year
  Sex: Male

DRUGS (21)
  1. ADALIMUMAB [Suspect]
     Active Substance: ADALIMUMAB
     Indication: Product used for unknown indication
     Dosage: UNK
     Route: 065
  2. COSENTYX [Suspect]
     Active Substance: SECUKINUMAB
     Indication: Ankylosing spondylitis
     Dosage: UNK (ATTACK DOSE)
     Route: 065
     Dates: start: 20230523
  3. COSENTYX [Suspect]
     Active Substance: SECUKINUMAB
     Indication: Spondylitis
     Dosage: UNK (INJECTION NOS)
     Route: 065
     Dates: start: 20230530
  4. COSENTYX [Suspect]
     Active Substance: SECUKINUMAB
     Dosage: UNK
     Route: 065
     Dates: start: 20230618
  5. COSENTYX [Suspect]
     Active Substance: SECUKINUMAB
     Dosage: UNK, QMO
     Route: 065
  6. COSENTYX [Suspect]
     Active Substance: SECUKINUMAB
     Dosage: UNK, OTHER (EVERY 28 DAYS)
     Route: 065
  7. COSENTYX [Suspect]
     Active Substance: SECUKINUMAB
     Dosage: 150 MG, QMO
     Route: 065
  8. COSENTYX [Suspect]
     Active Substance: SECUKINUMAB
     Dosage: UNK
     Route: 065
  9. COSENTYX [Suspect]
     Active Substance: SECUKINUMAB
     Dosage: 300 MG
     Route: 065
  10. COSENTYX [Suspect]
     Active Substance: SECUKINUMAB
     Dosage: 300 MG, QMO
     Route: 065
  11. COSENTYX [Suspect]
     Active Substance: SECUKINUMAB
     Dosage: UNK
     Route: 065
  12. COSENTYX [Suspect]
     Active Substance: SECUKINUMAB
     Dosage: 150 MG
     Route: 065
  13. COSENTYX [Suspect]
     Active Substance: SECUKINUMAB
     Dosage: 150 MG
     Route: 065
  14. COSENTYX [Suspect]
     Active Substance: SECUKINUMAB
     Dosage: 300 ML, QMO (2 PENS)
     Route: 065
  15. COSENTYX [Suspect]
     Active Substance: SECUKINUMAB
     Dosage: UNK
     Route: 065
     Dates: start: 20250904
  16. COSENTYX [Suspect]
     Active Substance: SECUKINUMAB
     Dosage: UNK (2 PENS)
     Route: 065
  17. PREGABALIN [Suspect]
     Active Substance: PREGABALIN
     Indication: Pain
     Dosage: 75 MG
     Route: 065
  18. AMITRIPTYLINE [Suspect]
     Active Substance: AMITRIPTYLINE
     Indication: Product used for unknown indication
     Dosage: 25 MG
     Route: 065
  19. NORTRIPTYLINE [Concomitant]
     Active Substance: NORTRIPTYLINE
     Indication: Product used for unknown indication
     Dosage: 50 MG (ONE IN THE MORNING ONE IN NIGHT WHICH IS 25)
     Route: 065
  20. TRAMADOL HYDROCHLORIDE [Concomitant]
     Active Substance: TRAMADOL HYDROCHLORIDE
     Indication: Product used for unknown indication
     Dosage: 50 MG
     Route: 065
  21. AMITRIPTYLINE HYDROCHLORIDE [Concomitant]
     Active Substance: AMITRIPTYLINE HYDROCHLORIDE
     Indication: Product used for unknown indication
     Dosage: 25 MG
     Route: 065

REACTIONS (81)
  - Cerebrospinal fluid leakage [Unknown]
  - Asphyxia [Unknown]
  - Uveitis [Recovering/Resolving]
  - Photophobia [Unknown]
  - Eye pain [Unknown]
  - Chills [Recovered/Resolved]
  - Chills [Recovered/Resolved]
  - Tremor [Recovered/Resolved]
  - Pain in extremity [Recovered/Resolved]
  - Pain [Recovered/Resolved]
  - Feeling hot [Recovered/Resolved]
  - Hyperhidrosis [Recovered/Resolved]
  - Spinal pain [Recovered/Resolved]
  - Arthralgia [Not Recovered/Not Resolved]
  - Mobility decreased [Recovered/Resolved]
  - Mobility decreased [Unknown]
  - Neuralgia [Unknown]
  - Gait disturbance [Unknown]
  - Toothache [Unknown]
  - Pain in extremity [Not Recovered/Not Resolved]
  - Spinal disorder [Unknown]
  - Chest pain [Unknown]
  - Pain [Not Recovered/Not Resolved]
  - Insomnia [Unknown]
  - Neck pain [Not Recovered/Not Resolved]
  - Intervertebral disc disorder [Unknown]
  - Osteoarthritis [Unknown]
  - Back pain [Not Recovered/Not Resolved]
  - Burning sensation [Unknown]
  - Drug ineffective [Not Recovered/Not Resolved]
  - Injury [Unknown]
  - Dysgeusia [Unknown]
  - Musculoskeletal stiffness [Not Recovered/Not Resolved]
  - Lumbar hernia [Unknown]
  - Ligament pain [Not Recovered/Not Resolved]
  - Spinal pain [Not Recovered/Not Resolved]
  - Irritability [Recovering/Resolving]
  - Nervousness [Not Recovered/Not Resolved]
  - Condition aggravated [Not Recovered/Not Resolved]
  - Musculoskeletal discomfort [Not Recovered/Not Resolved]
  - Anger [Not Recovered/Not Resolved]
  - Emotional distress [Unknown]
  - Inflammation [Unknown]
  - Stress [Not Recovered/Not Resolved]
  - Confusional state [Unknown]
  - Headache [Recovering/Resolving]
  - Restlessness [Unknown]
  - Decreased immune responsiveness [Unknown]
  - Intervertebral disc protrusion [Unknown]
  - Peripheral swelling [Unknown]
  - Asthenia [Unknown]
  - Balance disorder [Unknown]
  - Illness [Unknown]
  - Feeling abnormal [Unknown]
  - Visual impairment [Unknown]
  - Tremor [Unknown]
  - Dizziness postural [Recovering/Resolving]
  - Pruritus [Not Recovered/Not Resolved]
  - Erythema [Not Recovered/Not Resolved]
  - Temperature intolerance [Not Recovered/Not Resolved]
  - Crying [Not Recovered/Not Resolved]
  - Memory impairment [Not Recovered/Not Resolved]
  - Blister [Recovered/Resolved with Sequelae]
  - Scab [Recovered/Resolved with Sequelae]
  - Blister infected [Recovered/Resolved with Sequelae]
  - Skin exfoliation [Not Recovered/Not Resolved]
  - Dry skin [Not Recovered/Not Resolved]
  - Malaise [Unknown]
  - Blister [Not Recovered/Not Resolved]
  - Discharge [Not Recovered/Not Resolved]
  - Scab [Not Recovered/Not Resolved]
  - Psoriasis [Not Recovered/Not Resolved]
  - Anxiety [Not Recovered/Not Resolved]
  - Pain of skin [Not Recovered/Not Resolved]
  - Pustule [Not Recovered/Not Resolved]
  - Skin irritation [Not Recovered/Not Resolved]
  - Mood altered [Unknown]
  - Sluggishness [Unknown]
  - Nail disorder [Unknown]
  - Pigmentation disorder [Unknown]
  - Inflammation [Unknown]

NARRATIVE: CASE EVENT DATE: 20230601
